FAERS Safety Report 15355163 (Version 1)
Quarter: 2018Q3

REPORT INFORMATION
  Report Type: Spontaneous
  Country: US (occurrence: US)
  Receive Date: 20180830
  Receipt Date: 20180830
  Transmission Date: 20181010
  Serious: Yes (Other)
  Sender: FDA-Public Use
  Company Number: None

PATIENT
  Age: 23 Year
  Sex: Female
  Weight: 54 kg

DRUGS (2)
  1. MONTELUKAST SODIUM, GENERIC FOR SINGULAIR [Suspect]
     Active Substance: MONTELUKAST SODIUM
     Indication: ASTHMA
     Dosage: ?          QUANTITY:1 TABLET(S);?
     Route: 048
     Dates: start: 20170915, end: 20180815
  2. ZYRTEC [Concomitant]
     Active Substance: CETIRIZINE HYDROCHLORIDE

REACTIONS (15)
  - Pain [None]
  - Depression [None]
  - Headache [None]
  - Emotional disorder [None]
  - Sleep disorder [None]
  - Unevaluable event [None]
  - Panic attack [None]
  - Nightmare [None]
  - Paranoia [None]
  - Hot flush [None]
  - Anxiety [None]
  - Feeling abnormal [None]
  - Crying [None]
  - Paraesthesia [None]
  - Thinking abnormal [None]

NARRATIVE: CASE EVENT DATE: 20180801
